FAERS Safety Report 25713133 (Version 6)
Quarter: 2025Q4

REPORT INFORMATION
  Report Type: Report from Study
  Country: US (occurrence: US)
  Receive Date: 20250822
  Receipt Date: 20251031
  Transmission Date: 20260117
  Serious: Yes (Other)
  Sender: AMGEN
  Company Number: US-AMGEN-USASL2025145583

PATIENT
  Age: 23 Year
  Sex: Female

DRUGS (6)
  1. TEPEZZA [Suspect]
     Active Substance: TEPROTUMUMAB-TRBW
     Indication: Toxic goitre
     Dosage: 10 MILLIGRAM/KILOGRAM, Q3WK (DOSE 1)
     Route: 040
     Dates: start: 20250627
  2. TEPEZZA [Suspect]
     Active Substance: TEPROTUMUMAB-TRBW
     Dosage: 20 MILLIGRAM/KILOGRAM, Q3WK
     Route: 040
     Dates: start: 2025
  3. TEPEZZA [Suspect]
     Active Substance: TEPROTUMUMAB-TRBW
     Dosage: 20 MILLIGRAM/KILOGRAM, Q3WK, THIRD INFUSION
     Route: 040
     Dates: start: 20250815
  4. TEPEZZA [Suspect]
     Active Substance: TEPROTUMUMAB-TRBW
     Dosage: 20 MILLIGRAM/KILOGRAM, Q3WK, FOURTH INFUSION
     Route: 040
     Dates: start: 20250905
  5. TEPEZZA [Suspect]
     Active Substance: TEPROTUMUMAB-TRBW
     Dosage: 20 MILLIGRAM/KILOGRAM, Q3WK, FIFTH INFUSION
     Route: 040
     Dates: start: 20250926, end: 20250926
  6. TEPEZZA [Suspect]
     Active Substance: TEPROTUMUMAB-TRBW
     Route: 065
     Dates: end: 20250926

REACTIONS (8)
  - Cochlear injury [Unknown]
  - Therapeutic product effect incomplete [Unknown]
  - Pain [Recovering/Resolving]
  - Fatigue [Unknown]
  - Muscle spasms [Unknown]
  - Tinnitus [Unknown]
  - Illness [Unknown]
  - Acoustic stimulation tests abnormal [Unknown]

NARRATIVE: CASE EVENT DATE: 20250101
